FAERS Safety Report 6653158-8 (Version None)
Quarter: 2010Q1

REPORT INFORMATION
  Report Type: 
  Country: None (occurrence: None)
  Receive Date: 20100326
  Receipt Date: 20100322
  Transmission Date: 20100710
  Serious: Yes (Life-Threatening, Hospitalization)
  Sender: FDA-Public Use
  Company Number: SK-B.I. PHARMACEUTICALS,INC./RIDGEFIELD-2010-AP-00153AP

PATIENT
  Sex: Male
  Weight: 52 kg

DRUGS (3)
  1. TIOTROPIUM BROMIDE [Suspect]
     Indication: CHRONIC OBSTRUCTIVE PULMONARY DISEASE
     Dosage: 18 MCG
     Route: 055
     Dates: start: 20091214, end: 20100228
  2. SERETIDE DISCUS [Concomitant]
     Indication: ASTHMA
     Dosage: 2 X 250 MG
     Route: 055
     Dates: start: 20030513
  3. LEVOCETIRIZIN [Concomitant]
     Indication: ASTHMA
     Dosage: 1 X 1
     Route: 048
     Dates: start: 20080815

REACTIONS (15)
  - ABDOMINAL PAIN [None]
  - AORTIC ARTERIOSCLEROSIS [None]
  - ATELECTASIS [None]
  - FALL [None]
  - HYPOCHROMIC ANAEMIA [None]
  - INFLAMMATION [None]
  - LEUKOCYTOSIS [None]
  - LIVER DISORDER [None]
  - PERITONEAL HAEMORRHAGE [None]
  - RESPIRATORY FAILURE [None]
  - SHOCK HAEMORRHAGIC [None]
  - SPLENECTOMY [None]
  - SPLENIC RUPTURE [None]
  - THROMBOCYTOPENIA [None]
  - THROMBOCYTOSIS [None]
